FAERS Safety Report 5175737-X (Version None)
Quarter: 2006Q4

REPORT INFORMATION
  Report Type: 
  Country: None (occurrence: None)
  Receive Date: 20061215
  Receipt Date: 20061205
  Transmission Date: 20070319
  Serious: Yes (Life-Threatening, Other)
  Sender: FDA-Public Use
  Company Number: FR-JNJFOC-20060905949

PATIENT
  Age: 44 Year
  Sex: Male
  Weight: 75 kg

DRUGS (19)
  1. REMICADE [Suspect]
     Route: 042
  2. REMICADE [Suspect]
     Dosage: LAST INFUSION (5MG/KG)
     Route: 042
  3. REMICADE [Suspect]
     Dosage: (5MG/KG)
     Route: 042
  4. REMICADE [Suspect]
     Dosage: (5MG/KG)
     Route: 042
  5. REMICADE [Suspect]
     Dosage: (5MG/KG)
     Route: 042
  6. REMICADE [Suspect]
     Dosage: (5MG/KG)
     Route: 042
  7. REMICADE [Suspect]
     Dosage: (5MG/KG)
     Route: 042
  8. REMICADE [Suspect]
     Indication: CROHN'S DISEASE
     Dosage: FIRST INFUSION (5MG/KG)
     Route: 042
  9. METHOTREXATE [Concomitant]
     Route: 058
  10. METHOTREXATE [Concomitant]
     Route: 058
  11. METHOTREXATE [Concomitant]
     Route: 058
  12. METHOTREXATE [Concomitant]
     Route: 058
  13. METHOTREXATE [Concomitant]
     Route: 058
  14. METHOTREXATE [Concomitant]
     Route: 058
  15. METHOTREXATE [Concomitant]
     Route: 058
  16. METHOTREXATE [Concomitant]
     Indication: CROHN'S DISEASE
     Route: 058
  17. GLIVEK [Concomitant]
     Indication: CHRONIC MYELOID LEUKAEMIA
     Route: 048
  18. HYDROCORTISONE [Concomitant]
     Indication: CROHN'S DISEASE
     Route: 048
  19. SPECIAFOLDINE [Concomitant]
     Indication: CHRONIC MYELOID LEUKAEMIA
     Dosage: DOSE TAKEN EVERY DAY EXCEPT TUESDAY.
     Route: 048

REACTIONS (1)
  - CHRONIC MYELOID LEUKAEMIA [None]
